FAERS Safety Report 8804991 (Version 2)
Quarter: 2013Q1

REPORT INFORMATION
  Report Type: Spontaneous
  Country: GB (occurrence: GB)
  Receive Date: 20120924
  Receipt Date: 20130226
  Transmission Date: 20140127
  Serious: Yes (Other)
  Sender: FDA-Public Use
  Company Number: GB-ROCHE-1107279

PATIENT
  Age: 31 Year
  Sex: Female
  Weight: 45.1 kg

DRUGS (11)
  1. XOLAIR [Suspect]
     Indication: ASTHMA
     Route: 058
     Dates: start: 20111213
  2. CARBOCISTEINE [Concomitant]
  3. AZITHROMYCIN [Concomitant]
  4. CETIRIZINE [Concomitant]
  5. ALENDRONIC ACID [Concomitant]
  6. ADCAL-D3 [Concomitant]
  7. OMEPRAZOLE [Concomitant]
  8. SERETIDE [Concomitant]
  9. TIOTROPIUM [Concomitant]
  10. THEOPHYLLIN [Concomitant]
  11. MONTELUKAST [Concomitant]

REACTIONS (6)
  - Rash [Not Recovered/Not Resolved]
  - Laceration [Unknown]
  - Decreased appetite [Unknown]
  - Metabolic function test abnormal [Unknown]
  - Blood immunoglobulin E increased [Unknown]
  - Allergy test positive [Unknown]
